FAERS Safety Report 5201099-5 (Version None)
Quarter: 2007Q1

REPORT INFORMATION
  Report Type: 
  Country: None (occurrence: None)
  Receive Date: 20070103
  Receipt Date: 20061218
  Transmission Date: 20070707
  Serious: Yes (Hospitalization)
  Sender: FDA-Public Use
  Company Number: 234246

PATIENT
  Age: 62 Year
  Sex: Female
  Weight: 65 kg

DRUGS (4)
  1. AVASTIN [Suspect]
     Indication: COLON CANCER
     Dosage: 330 MG, Q2W, INTRAVENOUS
     Route: 042
     Dates: start: 20061122, end: 20061215
  2. OXALIPLATIN [Suspect]
     Indication: COLON CANCER
     Dosage: 85 MG, Q2W, INTRAVENOUS
     Route: 042
     Dates: start: 20061122, end: 20061215
  3. LEUCOVORIN CALCIUM [Suspect]
     Indication: COLON CANCER
     Dosage: 200 MG/M2, Q2W, INTRAVENOUS
     Route: 042
     Dates: start: 20061122, end: 20061215
  4. FLUOROURACIL [Suspect]
     Indication: COLON CANCER
     Dosage: SEE IMAGE
     Dates: start: 20061122, end: 20061215

REACTIONS (1)
  - PSOAS ABSCESS [None]
